FAERS Safety Report 9537905 (Version 2)
Quarter: 2013Q4

REPORT INFORMATION
  Report Type: Report from Study
  Country: US (occurrence: US)
  Receive Date: 20130919
  Receipt Date: 20131002
  Transmission Date: 20140711
  Serious: Yes (Other)
  Sender: FDA-Public Use
  Company Number: GXBR2013US001676

PATIENT
  Age: 36 Year
  Sex: Female

DRUGS (2)
  1. ENOXAPARIN SODIUM [Suspect]
     Indication: HEART VALVE REPLACEMENT
     Dosage: 75 MG, BID
     Route: 058
     Dates: start: 20130807
  2. COUMADIN ^BOOTS^ [Suspect]
     Indication: HEART VALVE REPLACEMENT
     Dosage: UNK MG, UNK

REACTIONS (2)
  - Abortion spontaneous [Recovered/Resolved]
  - Maternal exposure during pregnancy [Recovered/Resolved]
